FAERS Safety Report 11812414 (Version 3)
Quarter: 2016Q1

REPORT INFORMATION
  Report Type: Report from Study
  Country: US (occurrence: US)
  Receive Date: 20151208
  Receipt Date: 20160111
  Transmission Date: 20160525
  Serious: Yes (Death, Hospitalization)
  Sender: FDA-Public Use
  Company Number: US-B.I. PHARMACEUTICALS,INC./RIDGEFIELD-2015-BI-48093BP

PATIENT
  Sex: Male

DRUGS (2)
  1. OFEV [Suspect]
     Active Substance: NINTEDANIB
     Dosage: 150 MG
     Route: 048
  2. OFEV [Suspect]
     Active Substance: NINTEDANIB
     Indication: IDIOPATHIC PULMONARY FIBROSIS
     Dosage: 300 MG
     Route: 048
     Dates: start: 20150624

REACTIONS (13)
  - Bedridden [Unknown]
  - Weight decreased [Unknown]
  - Listless [Unknown]
  - Nasal dryness [Unknown]
  - Chromaturia [Unknown]
  - Asthenia [Unknown]
  - Diarrhoea [Unknown]
  - Rotator cuff syndrome [Unknown]
  - Rosacea [Unknown]
  - Abasia [Unknown]
  - Respiratory failure [Fatal]
  - Fatigue [Unknown]
  - Chest pain [Unknown]
